FAERS Safety Report 14961660 (Version 1)
Quarter: 2018Q2

REPORT INFORMATION
  Report Type: Spontaneous
  Country: JP (occurrence: JP)
  Receive Date: 20180601
  Receipt Date: 20180601
  Transmission Date: 20180711
  Serious: Yes (Death)
  Sender: FDA-Public Use
  Company Number: JP-ROCHE-2131284

PATIENT
  Age: 87 Year
  Sex: Female

DRUGS (1)
  1. RITUXAN [Suspect]
     Active Substance: RITUXIMAB
     Indication: NON-HODGKIN^S LYMPHOMA
     Route: 041
     Dates: start: 20180424, end: 20180424

REACTIONS (1)
  - Disease progression [Fatal]
